FAERS Safety Report 14152914 (Version 2)
Quarter: 2017Q4

REPORT INFORMATION
  Report Type: Spontaneous
  Country: JP (occurrence: JP)
  Receive Date: 20171102
  Receipt Date: 20171212
  Transmission Date: 20180321
  Serious: Yes (Hospitalization, Other)
  Sender: FDA-Public Use
  Company Number: JP-PFIZER INC-2017469390

PATIENT
  Age: 82 Year
  Sex: Female
  Weight: 38 kg

DRUGS (10)
  1. LYRICA [Suspect]
     Active Substance: PREGABALIN
     Dosage: 50 MG, 2X/DAY
     Route: 048
     Dates: start: 20170922, end: 20170926
  2. NEXIUM [Concomitant]
     Active Substance: ESOMEPRAZOLE MAGNESIUM
     Dosage: UNK
     Route: 048
     Dates: start: 201509
  3. MESALAZINE [Concomitant]
     Active Substance: MESALAMINE
     Indication: SMALL INTESTINE ULCER
     Dosage: 6 DF, 3X/DAY
     Route: 048
     Dates: start: 201509
  4. TRAMCET [Concomitant]
     Active Substance: ACETAMINOPHEN\TRAMADOL
     Indication: PAIN
     Dosage: 4 DF, 4X/DAY
     Route: 048
     Dates: start: 201509
  5. MIYA-BM [Concomitant]
     Active Substance: CLOSTRIDIUM BUTYRICUM SPORES STRAIN M-55
     Indication: SMALL INTESTINE ULCER
     Dosage: 3 G, 3X/DAY
     Route: 048
     Dates: start: 201509
  6. PREDNIN [Concomitant]
     Active Substance: PREDNISOLONE SODIUM PHOSPHATE
     Indication: SMALL INTESTINE ULCER
     Dosage: 2 DF, 1X/DAY
     Route: 048
     Dates: start: 201509
  7. LYRICA [Suspect]
     Active Substance: PREGABALIN
     Dosage: 100 MG, 2X/DAY
     Route: 048
     Dates: start: 20170927, end: 20170929
  8. MAGNESIUM OXIDE. [Concomitant]
     Active Substance: MAGNESIUM OXIDE
     Indication: SMALL INTESTINE ULCER
     Dosage: 1.2 G, 3X/DAY
     Route: 048
     Dates: start: 201509
  9. METHYCOBAL [Concomitant]
     Active Substance: METHYLCOBALAMIN
     Indication: HYPOAESTHESIA
     Dosage: 3 DF, 3X/DAY
     Route: 048
     Dates: start: 201509
  10. CONTOMIN /00011902/ [Concomitant]
     Active Substance: CHLORPROMAZINE HYDROCHLORIDE
     Indication: INSOMNIA
     Dosage: 1 DF, 1X/DAY
     Route: 048
     Dates: start: 201509

REACTIONS (5)
  - Gait inability [Recovered/Resolved]
  - Gait disturbance [Unknown]
  - Meningioma [Recovered/Resolved]
  - Hypoaesthesia [Unknown]
  - Dizziness [Unknown]

NARRATIVE: CASE EVENT DATE: 20171012
